FAERS Safety Report 6983479-0 (Version None)
Quarter: 2010Q3

REPORT INFORMATION
  Report Type: 
  Country: None (occurrence: None)
  Receive Date: 20100914
  Receipt Date: 20080709
  Transmission Date: 20110219
  Serious: No
  Sender: FDA-Public Use
  Company Number: US-WYE-H05030608

PATIENT
  Sex: Male

DRUGS (2)
  1. ADVIL LIQUI-GELS [Suspect]
     Route: 048
     Dates: start: 20070101
  2. ADVIL LIQUI-GELS [Suspect]
     Dosage: 2 TABLET EVERY 3-4 HOURS DAILY
     Route: 048

REACTIONS (2)
  - MEDICATION RESIDUE [None]
  - OVERDOSE [None]
